FAERS Safety Report 5221770-9 (Version None)
Quarter: 2007Q1

REPORT INFORMATION
  Report Type: 
  Country: None (occurrence: None)
  Receive Date: 20070129
  Receipt Date: 20070115
  Transmission Date: 20070707
  Serious: Yes (Hospitalization)
  Sender: FDA-Public Use
  Company Number: FR-JNJFOC-20061206077

PATIENT
  Sex: Female

DRUGS (7)
  1. ACETAMINOPHEN AND TRAMADOL HCL [Suspect]
     Indication: PAIN
     Route: 048
  2. EQUANIL [Suspect]
     Indication: AGITATION
     Route: 065
  3. ZELITREX [Concomitant]
     Indication: HERPES ZOSTER
     Route: 065
  4. CORDARONE [Concomitant]
     Route: 065
  5. FLECAINIDE ACETATE [Concomitant]
     Route: 065
  6. HYTACAND [Concomitant]
     Route: 065
  7. ALPRESS [Concomitant]
     Route: 065

REACTIONS (3)
  - EXTRASYSTOLES [None]
  - HALLUCINATION, VISUAL [None]
  - TACHYARRHYTHMIA [None]
